FAERS Safety Report 5762050-2 (Version None)
Quarter: 2008Q2

REPORT INFORMATION
  Report Type: 
  Country: None (occurrence: None)
  Receive Date: 20080603
  Receipt Date: 20080520
  Transmission Date: 20081010
  Serious: Yes (Hospitalization)
  Sender: FDA-Public Use
  Company Number: MPSI-1000066

PATIENT
  Age: 3 Year
  Sex: Female
  Weight: 12 kg

DRUGS (7)
  1. ALDURAZYME [Suspect]
     Indication: MUCOPOLYSACCHARIDOSIS I
     Dosage: 0.5 MG/KG, INTRAVENOUS
     Route: 042
     Dates: start: 20080117
  2. BECLOMETHASONE DIPROPIONATE [Concomitant]
  3. SALBUTAMOL (SALBUTAMOL) [Concomitant]
  4. NIFEDIPINE [Concomitant]
  5. RANITIDINE [Concomitant]
  6. FUROSEMIDE [Concomitant]
  7. IPRATROPIUM BROMIDE [Concomitant]

REACTIONS (8)
  - CYANOSIS [None]
  - HEADACHE [None]
  - HYDROCEPHALUS [None]
  - INFUSION RELATED REACTION [None]
  - OXYGEN SATURATION DECREASED [None]
  - PNEUMONIA [None]
  - TACHYPNOEA [None]
  - VOMITING [None]
